FAERS Safety Report 8115751-5 (Version None)
Quarter: 2012Q1

REPORT INFORMATION
  Report Type: 
  Country: None (occurrence: None)
  Receive Date: 20120206
  Receipt Date: 20120203
  Transmission Date: 20120608
  Serious: No
  Sender: FDA-Public Use
  Company Number: GB-ROCHE-1027885

PATIENT
  Sex: Female

DRUGS (4)
  1. SALBUTAMOL AEROSOL [Concomitant]
  2. SALMETEROL [Concomitant]
  3. LUCENTIS [Suspect]
     Indication: PRODUCT USED FOR UNKNOWN INDICATION
     Route: 050
  4. FLUTICASONE PROPIONATE/SALMETEROL [Concomitant]

REACTIONS (1)
  - FALL [None]
